FAERS Safety Report 18202986 (Version 1)
Quarter: 2020Q3

REPORT INFORMATION
  Report Type: Spontaneous
  Country: NL (occurrence: NL)
  Receive Date: 20200827
  Receipt Date: 20200827
  Transmission Date: 20201103
  Serious: Yes (Life-Threatening, Hospitalization, Other)
  Sender: FDA-Public Use
  Company Number: NVSC2020NL135411

PATIENT
  Age: 64 Year
  Sex: Male
  Weight: 90 kg

DRUGS (21)
  1. TIOTROPIUM [Concomitant]
     Active Substance: TIOTROPIUM
     Indication: CHRONIC OBSTRUCTIVE PULMONARY DISEASE
     Dosage: 5 ?G, QD
     Route: 055
  2. BRIMONIDINE [Concomitant]
     Active Substance: BRIMONIDINE TARTRATE
     Indication: ROSACEA
     Dosage: 3 MG, QD
     Route: 048
  3. PHENPROCOUMON [Interacting]
     Active Substance: PHENPROCOUMON
     Indication: ANTICOAGULANT THERAPY
     Dosage: 3 MG, PRN (1 AS NECESSARY)
     Route: 048
  4. MOMETASONE FUROATE. [Concomitant]
     Active Substance: MOMETASONE FUROATE
     Indication: SKIN IRRITATION
     Dosage: 2 MG, QW (1 MG, BIW)
     Route: 065
  5. METHOTREXATE. [Concomitant]
     Active Substance: METHOTREXATE
     Indication: ROSACEA
     Dosage: 25 MG, OW
     Route: 065
  6. NITROGLYCERIN. [Concomitant]
     Active Substance: NITROGLYCERIN
     Indication: ANGINA PECTORIS
     Dosage: 0.4 MG, PRN
     Route: 060
  7. PANTOPRAZOLE [Concomitant]
     Active Substance: PANTOPRAZOLE
     Indication: PROPHYLAXIS
  8. RAMIPRIL. [Concomitant]
     Active Substance: RAMIPRIL
     Indication: HYPERTENSION
     Dosage: 2.5 MG, QD
     Route: 048
  9. ACETYLSALICYLIC ACID [Suspect]
     Active Substance: ASPIRIN
     Indication: ANTIPLATELET THERAPY
     Dosage: 80 MG, QD
     Route: 048
  10. ATROVENT [Concomitant]
     Active Substance: IPRATROPIUM BROMIDE
     Indication: CHRONIC OBSTRUCTIVE PULMONARY DISEASE
     Dosage: 80 UG, QD (20 ?G, QID)
     Route: 055
  11. FOLIC ACID. [Concomitant]
     Active Substance: FOLIC ACID
     Indication: DRUG TOXICITY PROPHYLAXIS
     Dosage: 5 MG, BIW
     Route: 048
  12. FOLIC ACID. [Concomitant]
     Active Substance: FOLIC ACID
     Indication: PROPHYLAXIS
  13. ISOSORBIDE MONONITRATE. [Concomitant]
     Active Substance: ISOSORBIDE MONONITRATE
     Indication: ANGINA PECTORIS
     Dosage: 25 MG, QD
     Route: 048
  14. SILODOSIN. [Concomitant]
     Active Substance: SILODOSIN
     Indication: URINARY RETENTION
     Dosage: 4 MG, QD
     Route: 048
  15. CALCIPOTRIOL [Concomitant]
     Active Substance: CALCIPOTRIENE
     Indication: PSORIASIS
     Dosage: 50 ?G, PRN
     Route: 065
  16. CLOBETASOL [Concomitant]
     Active Substance: CLOBETASOL
     Indication: PSORIASIS
     Dosage: 0.5 MG, TIW
     Route: 065
  17. KETOCONAZOL [Concomitant]
     Active Substance: KETOCONAZOLE
     Indication: ECZEMA
     Dosage: 40 MG, QW (20 MG, BIW)
     Route: 065
  18. BETAMETHASONE DIPROPIONATE. [Concomitant]
     Active Substance: BETAMETHASONE DIPROPIONATE
     Indication: PSORIASIS
     Dosage: 500 ?G, PRN
     Route: 065
  19. CETOMACROGOL 1000 [Concomitant]
     Indication: SKIN IRRITATION
     Dosage: 1 AS NECESSARY
     Route: 065
  20. CETOMACROGOL 1000 [Concomitant]
     Dosage: 30 %, QD (10 %, TID)
     Route: 065
  21. PANTOPRAZOLE [Concomitant]
     Active Substance: PANTOPRAZOLE
     Indication: PROPHYLAXIS AGAINST GASTROINTESTINAL ULCER
     Dosage: 20 MG, QD
     Route: 048

REACTIONS (10)
  - Epilepsy [Recovered/Resolved with Sequelae]
  - Anaemia [Unknown]
  - Labelled drug-drug interaction medication error [Unknown]
  - Humerus fracture [Recovering/Resolving]
  - Pneumonia [Recovered/Resolved]
  - Product administration error [Unknown]
  - Haemorrhagic stroke [Recovering/Resolving]
  - Unresponsive to stimuli [Unknown]
  - Post stroke epilepsy [Recovered/Resolved]
  - Potentiating drug interaction [Unknown]

NARRATIVE: CASE EVENT DATE: 20150811
